FAERS Safety Report 8839755 (Version 4)
Quarter: 2012Q4

REPORT INFORMATION
  Report Type: Report from Study
  Country: IL (occurrence: IL)
  Receive Date: 20121015
  Receipt Date: 20121112
  Transmission Date: 20130627
  Serious: Yes (Hospitalization)
  Sender: FDA-Public Use
  Company Number: IL-SANOFI-AVENTIS-2012SA064669

PATIENT
  Sex: Male
  Weight: 76.4 kg

DRUGS (14)
  1. CABAZITAXEL [Suspect]
     Indication: PROSTATE CANCER METASTATIC
     Route: 042
     Dates: start: 20120522, end: 20120522
  2. CABAZITAXEL [Suspect]
     Indication: PROSTATE CANCER METASTATIC
     Route: 042
     Dates: start: 20120903, end: 20120903
  3. PREDNISONE [Suspect]
     Indication: PROSTATE CANCER METASTATIC
     Route: 048
     Dates: start: 20120522, end: 20120910
  4. VITAMIN D [Concomitant]
     Route: 048
     Dates: start: 20110415
  5. CALCIUM [Concomitant]
     Route: 048
     Dates: start: 20110415
  6. SIMVASTATIN [Concomitant]
     Route: 048
     Dates: start: 201202
  7. LAXADIN [Concomitant]
     Route: 048
     Dates: start: 201109
  8. STOPIT [Concomitant]
     Route: 048
     Dates: start: 20120525
  9. ROKACET [Concomitant]
     Route: 048
     Dates: start: 20120601
  10. XATRAL [Concomitant]
     Route: 048
     Dates: start: 20120415
  11. FLUOXETINE [Concomitant]
     Route: 048
     Dates: start: 200005
  12. DETRUSITOL [Concomitant]
     Route: 048
     Dates: start: 20110415
  13. ESRACAIN [Concomitant]
     Route: 061
     Dates: start: 201205
  14. DEXAMOL [Concomitant]
     Route: 048
     Dates: start: 20120625

REACTIONS (2)
  - Abdominal pain [Not Recovered/Not Resolved]
  - Pulmonary embolism [Recovered/Resolved]
